FAERS Safety Report 15697048 (Version 3)
Quarter: 2019Q1

REPORT INFORMATION
  Report Type: Spontaneous
  Country: US (occurrence: US)
  Receive Date: 20181206
  Receipt Date: 20190208
  Transmission Date: 20190417
  Serious: Yes (Other)
  Sender: FDA-Public Use
  Company Number: US-ABBVIE-18K-163-2540350-00

PATIENT
  Age: 55 Year
  Sex: Female

DRUGS (5)
  1. ENBREL [Suspect]
     Active Substance: ETANERCEPT
     Indication: RHEUMATOID ARTHRITIS
     Route: 065
     Dates: start: 2000, end: 2017
  2. ENBREL [Suspect]
     Active Substance: ETANERCEPT
     Route: 065
     Dates: start: 201803
  3. HUMIRA [Suspect]
     Active Substance: ADALIMUMAB
     Indication: PRODUCT USED FOR UNKNOWN INDICATION
     Route: 058
  4. ALEVE [Concomitant]
     Active Substance: NAPROXEN SODIUM
     Indication: PRODUCT USED FOR UNKNOWN INDICATION
  5. LEFLUNOMIDE. [Concomitant]
     Active Substance: LEFLUNOMIDE
     Indication: PRODUCT USED FOR UNKNOWN INDICATION

REACTIONS (11)
  - Weight increased [Unknown]
  - Drug ineffective [Unknown]
  - Device issue [Unknown]
  - Product storage error [Unknown]
  - Rheumatoid arthritis [Recovering/Resolving]
  - Acne [Unknown]
  - Product administration error [Unknown]
  - Pain [Unknown]
  - Musculoskeletal stiffness [Unknown]
  - Injection site pain [Unknown]
  - Arthralgia [Unknown]

NARRATIVE: CASE EVENT DATE: 2017
